FAERS Safety Report 7226759-6 (Version None)
Quarter: 2011Q1

REPORT INFORMATION
  Report Type: 
  Country: None (occurrence: None)
  Receive Date: 20110105
  Receipt Date: 20101222
  Transmission Date: 20110831
  Serious: Yes (Hospitalization)
  Sender: FDA-Public Use
  Company Number: 692374

PATIENT
  Age: 52 Year
  Sex: Male

DRUGS (10)
  1. (ZELITREX /01269701/) [Concomitant]
  2. NEXIUM [Concomitant]
  3. (PRIMPERAN /00041901/) [Concomitant]
  4. ACETAMINOPHEN [Concomitant]
  5. (SPASFON /00765801/) [Concomitant]
  6. FUNGIZONE [Concomitant]
  7. PENTOSTATIN [Suspect]
     Indication: T-CELL PROLYMPHOCYTIC LEUKAEMIA
     Dosage: 8 MG MILLIGRAM(S), INTRAVENOUS
     Route: 042
     Dates: start: 20100601
  8. PENTOSTATIN [Suspect]
     Indication: T-CELL PROLYMPHOCYTIC LEUKAEMIA
     Dosage: 8 MG MILLIGRAM(S), INTRAVENOUS
     Route: 042
     Dates: start: 20100816
  9. PENTOSTATIN [Suspect]
     Indication: T-CELL PROLYMPHOCYTIC LEUKAEMIA
     Dosage: 8 MG MILLIGRAM(S), INTRAVENOUS
     Route: 042
     Dates: start: 20100722
  10. (DIFFU K) [Concomitant]

REACTIONS (8)
  - AXILLARY MASS [None]
  - PANCYTOPENIA [None]
  - CONJUNCTIVITIS [None]
  - DYSPNOEA [None]
  - CHEST PAIN [None]
  - TACHYCARDIA [None]
  - DERMATITIS BULLOUS [None]
  - HAEMOPTYSIS [None]
